FAERS Safety Report 19475715 (Version 1)
Quarter: 2021Q2

REPORT INFORMATION
  Report Type: Spontaneous
  Country: RS (occurrence: RS)
  Receive Date: 20210630
  Receipt Date: 20210630
  Transmission Date: 20210717
  Serious: Yes (Other)
  Sender: FDA-Public Use
  Company Number: RS-SUN PHARMACEUTICAL INDUSTRIES LTD-2021R1-300912

PATIENT
  Age: 45 Year
  Sex: Female

DRUGS (2)
  1. TOPIRAMATE. [Suspect]
     Active Substance: TOPIRAMATE
     Indication: ALCOHOLISM
     Dosage: 300 MILLIGRAM, DAILY
     Route: 065
  2. TOPIRAMATE. [Suspect]
     Active Substance: TOPIRAMATE
     Indication: DRUG DEPENDENCE
     Dosage: 100 MILLIGRAM, DAILY
     Route: 065

REACTIONS (4)
  - Pulse abnormal [Recovering/Resolving]
  - Blood pressure decreased [Recovering/Resolving]
  - Contusion [Recovering/Resolving]
  - Dizziness [Recovering/Resolving]
